FAERS Safety Report 17903072 (Version 2)
Quarter: 2020Q3

REPORT INFORMATION
  Report Type: Report from Study
  Country: None (occurrence: US)
  Receive Date: 20200617
  Receipt Date: 20200720
  Transmission Date: 20201103
  Serious: Yes (Other)
  Sender: FDA-Public Use
  Company Number: US-ABBVIE-19K-163-2736158-00

PATIENT
  Sex: Male

DRUGS (1)
  1. HUMIRA [Suspect]
     Active Substance: ADALIMUMAB
     Indication: CROHN^S DISEASE
     Dosage: CITRATE FREE
     Route: 058

REACTIONS (5)
  - Drug ineffective [Unknown]
  - Arthropathy [Unknown]
  - Colitis [Recovered/Resolved]
  - Fistula [Unknown]
  - Abscess [Unknown]

NARRATIVE: CASE EVENT DATE: 2020
